FAERS Safety Report 9475500 (Version 2)
Quarter: 2013Q3

REPORT INFORMATION
  Report Type: Spontaneous
  Country: US (occurrence: US)
  Receive Date: 20130826
  Receipt Date: 20130826
  Transmission Date: 20140515
  Serious: No
  Sender: FDA-Public Use
  Company Number: 2013SP003376

PATIENT
  Age: 19 Year
  Sex: Female

DRUGS (3)
  1. ERGOCALCIFEROL [Suspect]
     Indication: VITAMIN D DEFICIENCY
     Route: 048
     Dates: start: 201303, end: 201303
  2. ARMOUR THYROID [Concomitant]
     Indication: PRODUCT USED FOR UNKNOWN INDICATION
  3. MULTIVITAMIN /07703801/ [Concomitant]
     Indication: PRODUCT USED FOR UNKNOWN INDICATION
     Dates: end: 2013

REACTIONS (1)
  - Myalgia [Recovered/Resolved]
